FAERS Safety Report 10977397 (Version 2)
Quarter: 2015Q2

REPORT INFORMATION
  Report Type: Report from Study
  Country: US (occurrence: US)
  Receive Date: 20150402
  Receipt Date: 20150422
  Transmission Date: 20150821
  Serious: Yes (Other)
  Sender: FDA-Public Use
  Company Number: US-BIOGENIDEC-2015BI038468

PATIENT
  Age: 71 Year
  Sex: Male

DRUGS (16)
  1. FENTANYL. [Concomitant]
     Active Substance: FENTANYL
  2. RANITADINE [Concomitant]
  3. POTASSIUM [Concomitant]
     Active Substance: POTASSIUM
  4. VENLAFAXINE [Concomitant]
     Active Substance: VENLAFAXINE HYDROCHLORIDE
  5. PROMETHAZINE [Concomitant]
     Active Substance: PROMETHAZINE\PROMETHAZINE HYDROCHLORIDE
  6. LOSARTAN [Concomitant]
     Active Substance: LOSARTAN
  7. LYRICA [Concomitant]
     Active Substance: PREGABALIN
  8. BACLOFEN. [Concomitant]
     Active Substance: BACLOFEN
  9. ARICEPT [Concomitant]
     Active Substance: DONEPEZIL HYDROCHLORIDE
  10. TECFIDERA [Suspect]
     Active Substance: DIMETHYL FUMARATE
     Indication: MULTIPLE SCLEROSIS
     Route: 048
     Dates: start: 20130713, end: 20130719
  11. AMPYRA [Concomitant]
     Active Substance: DALFAMPRIDINE
  12. TRIMETHOPRIM. [Concomitant]
     Active Substance: TRIMETHOPRIM
  13. CLONAZEPAM. [Concomitant]
     Active Substance: CLONAZEPAM
  14. TECFIDERA [Suspect]
     Active Substance: DIMETHYL FUMARATE
     Indication: MULTIPLE SCLEROSIS
     Route: 048
     Dates: start: 20130720
  15. ZOFRAN [Concomitant]
     Active Substance: ONDANSETRON HYDROCHLORIDE
  16. OXYCODONE [Concomitant]
     Active Substance: OXYCODONE

REACTIONS (2)
  - Non-small cell lung cancer [Not Recovered/Not Resolved]
  - Bladder cancer [Not Recovered/Not Resolved]

NARRATIVE: CASE EVENT DATE: 201412
